FAERS Safety Report 25746136 (Version 1)
Quarter: 2025Q3

REPORT INFORMATION
  Report Type: Report from Study
  Country: BR (occurrence: BR)
  Receive Date: 20250901
  Receipt Date: 20250901
  Transmission Date: 20251020
  Serious: Yes (Hospitalization, Other)
  Sender: JOHNSON AND JOHNSON
  Company Number: BR-JNJFOC-20250833635

PATIENT
  Age: 63 Year
  Sex: Female
  Weight: 50 kg

DRUGS (3)
  1. GOLIMUMAB [Suspect]
     Active Substance: GOLIMUMAB
     Indication: Ankylosing spondylitis
     Route: 058
  2. GOLIMUMAB [Suspect]
     Active Substance: GOLIMUMAB
     Route: 041
     Dates: start: 202503
  3. GOLIMUMAB [Suspect]
     Active Substance: GOLIMUMAB

REACTIONS (6)
  - Dengue fever [Unknown]
  - Ankylosing spondylitis [Not Recovered/Not Resolved]
  - Sacroiliitis [Not Recovered/Not Resolved]
  - Gastrointestinal disorder [Unknown]
  - Lung disorder [Unknown]
  - Therapeutic response decreased [Unknown]

NARRATIVE: CASE EVENT DATE: 20250501
